FAERS Safety Report 25479219 (Version 2)
Quarter: 2025Q3

REPORT INFORMATION
  Report Type: Spontaneous
  Country: JP (occurrence: JP)
  Receive Date: 20250625
  Receipt Date: 20250918
  Transmission Date: 20251021
  Serious: Yes (Hospitalization, Other)
  Sender: JAZZ
  Company Number: JP-JAZZ PHARMACEUTICALS-2025-JP-003514

PATIENT
  Age: 74 Year
  Sex: Male

DRUGS (3)
  1. VYXEOS [Suspect]
     Active Substance: CYTARABINE\DAUNORUBICIN
     Indication: Acute myeloid leukaemia
  2. VIDAZA [Suspect]
     Active Substance: AZACITIDINE
     Indication: Acute myeloid leukaemia
  3. VENCLEXTA [Suspect]
     Active Substance: VENETOCLAX
     Indication: Acute myeloid leukaemia

REACTIONS (4)
  - Platelet count decreased [Recovering/Resolving]
  - Neutropenia [Recovered/Resolved]
  - Blast cell count increased [Not Recovered/Not Resolved]
  - Acute myeloid leukaemia [Unknown]
